FAERS Safety Report 5102707-X (Version None)
Quarter: 2006Q3

REPORT INFORMATION
  Report Type: 
  Country: None (occurrence: None)
  Receive Date: 20060907
  Receipt Date: 20060825
  Transmission Date: 20061208
  Serious: Yes (Other)
  Sender: FDA-Public Use
  Company Number: DEU-2006-0002254

PATIENT
  Age: 57 Year
  Sex: Female

DRUGS (9)
  1. MORPHINE SULFATE [Suspect]
     Indication: PAIN
     Dosage: 4800 MG, DAILY, ORAL
     Route: 048
     Dates: end: 20040501
  2. GOLD (GOLD) [Concomitant]
  3. QUENSYL HYDROCHLOROQUINE SULFATE) [Concomitant]
  4. AZULFIDINE [Concomitant]
  5. AZATHIOPRINE [Concomitant]
  6. CYCLOSPORINE [Concomitant]
  7. METHOTREXATE [Concomitant]
  8. CYCLOPHOSPHAMIDE [Concomitant]
  9. ENBREL [Concomitant]

REACTIONS (2)
  - DRUG RESISTANCE [None]
  - HYPERAESTHESIA [None]
